FAERS Safety Report 17278805 (Version 1)
Quarter: 2020Q1

REPORT INFORMATION
  Report Type: Report from Study
  Country: ES (occurrence: ES)
  Receive Date: 20200116
  Receipt Date: 20200116
  Transmission Date: 20200409
  Serious: Yes (Death, Hospitalization)
  Sender: FDA-Public Use
  Company Number: ES-MYLANLABS-2020M1005749

PATIENT
  Age: 37 Year
  Sex: Male

DRUGS (6)
  1. CICLOSPORIN [Interacting]
     Active Substance: CYCLOSPORINE
     Indication: PRODUCT USED FOR UNKNOWN INDICATION
     Dosage: UNK
     Route: 065
     Dates: start: 20130820
  2. CICLOFOSFAMIDA [Interacting]
     Active Substance: CYCLOPHOSPHAMIDE
     Indication: ACUTE MYELOID LEUKAEMIA
     Dosage: 2 GRAM, TOTAL
     Route: 042
     Dates: start: 20130824, end: 20130825
  3. FLUDARABINE [Interacting]
     Active Substance: FLUDARABINE PHOSPHATE
     Indication: ACUTE MYELOID LEUKAEMIA
     Dosage: 240 MILLIGRAM, TOTAL
     Route: 042
     Dates: start: 20130821, end: 20130824
  4. MESNA. [Concomitant]
     Active Substance: MESNA
     Indication: ACUTE MYELOID LEUKAEMIA
     Dosage: 8 GRAM, TOTAL
     Route: 042
     Dates: start: 20130825, end: 20130826
  5. BUSULFAN. [Suspect]
     Active Substance: BUSULFAN
     Indication: ACUTE MYELOID LEUKAEMIA
     Dosage: 240 MILLIGRAM, TOTAL
     Route: 042
     Dates: start: 20130822, end: 20130824
  6. METILPREDNISOLONA                  /00049601/ [Interacting]
     Active Substance: METHYLPREDNISOLONE
     Indication: ACUTE MYELOID LEUKAEMIA
     Dosage: 80 MILLIGRAM, TOTAL
     Route: 042
     Dates: start: 20130827, end: 20130827

REACTIONS (2)
  - Cytomegalovirus hepatitis [Fatal]
  - Drug interaction [Unknown]

NARRATIVE: CASE EVENT DATE: 20130909
